FAERS Safety Report 23852147 (Version 1)
Quarter: 2024Q2

REPORT INFORMATION
  Report Type: Spontaneous
  Country: CA (occurrence: CA)
  Receive Date: 20240514
  Receipt Date: 20240514
  Transmission Date: 20240716
  Serious: Yes (Death)
  Sender: FDA-Public Use
  Company Number: CA-002147023-NVSC2024CA101382

PATIENT
  Age: 93 Year
  Sex: Female

DRUGS (1)
  1. BEOVU [Suspect]
     Active Substance: BROLUCIZUMAB-DBLL
     Indication: Macular degeneration
     Dosage: 6 MG (SOLUTION INTRAVITREAL)
     Route: 031

REACTIONS (1)
  - Death [Fatal]
